FAERS Safety Report 6464953-2 (Version None)
Quarter: 2009Q4

REPORT INFORMATION
  Report Type: 
  Country: None (occurrence: None)
  Receive Date: 20091201
  Receipt Date: 20091127
  Transmission Date: 20100525
  Serious: Yes (Death, Other)
  Sender: FDA-Public Use
  Company Number: GR-CELGENEUS-066-50794-09112118

PATIENT
  Age: 69 Year

DRUGS (1)
  1. VIDAZA [Suspect]
     Route: 050

REACTIONS (7)
  - ACUTE MYELOID LEUKAEMIA [None]
  - DEATH [None]
  - DRUG INEFFECTIVE [None]
  - HAEMATOTOXICITY [None]
  - INFECTION [None]
  - INFUSION SITE REACTION [None]
  - MYELODYSPLASTIC SYNDROME TRANSFORMATION [None]
